FAERS Safety Report 22779778 (Version 3)
Quarter: 2023Q4

REPORT INFORMATION
  Report Type: Spontaneous
  Country: FR (occurrence: FR)
  Receive Date: 20230803
  Receipt Date: 20231103
  Transmission Date: 20240110
  Serious: Yes (Death, Life-Threatening, Hospitalization, Other)
  Sender: FDA-Public Use
  Company Number: US-ROCHE-3246507

PATIENT
  Age: 62 Year
  Sex: Male
  Weight: 89 kg

DRUGS (64)
  1. OXALIPLATIN [Suspect]
     Active Substance: OXALIPLATIN
     Indication: Colorectal cancer
     Dosage: 165 MILLIGRAM
     Route: 042
     Dates: start: 20220614, end: 20220712
  2. OXALIPLATIN [Suspect]
     Active Substance: OXALIPLATIN
     Dosage: 165 MILLIGRAM
     Route: 042
     Dates: start: 20220825, end: 20220825
  3. OXALIPLATIN [Suspect]
     Active Substance: OXALIPLATIN
     Dosage: 165 MILLIGRAM
     Route: 042
     Dates: start: 20220629, end: 20220728
  4. OXALIPLATIN [Suspect]
     Active Substance: OXALIPLATIN
     Dosage: 165 MILLIGRAM
     Route: 042
     Dates: start: 20220811, end: 20220825
  5. OXALIPLATIN [Suspect]
     Active Substance: OXALIPLATIN
     Dosage: 82.5 MILLIGRAM
     Route: 042
     Dates: start: 20220908, end: 20220909
  6. ESOMEPRAZOLE [Suspect]
     Active Substance: ESOMEPRAZOLE
     Indication: Product used for unknown indication
     Dosage: UNK
     Route: 065
     Dates: start: 20220719, end: 20220728
  7. ONDANSETRON [Suspect]
     Active Substance: ONDANSETRON
     Indication: Product used for unknown indication
     Dosage: UNK
     Route: 065
     Dates: start: 20220614
  8. BEVACIZUMAB [Suspect]
     Active Substance: BEVACIZUMAB
     Indication: Colorectal cancer
     Dosage: 118 MILLIGRAM
     Route: 042
     Dates: start: 20220728, end: 20220728
  9. BEVACIZUMAB [Suspect]
     Active Substance: BEVACIZUMAB
     Dosage: 188 MILLIGRAM
     Route: 042
     Dates: start: 20220728, end: 20220728
  10. BEVACIZUMAB [Suspect]
     Active Substance: BEVACIZUMAB
     Dosage: 437 MILLIGRAM
     Route: 042
     Dates: start: 20220825, end: 20220825
  11. BEVACIZUMAB [Suspect]
     Active Substance: BEVACIZUMAB
     Dosage: 450 MILLIGRAM
     Route: 042
     Dates: start: 20220629
  12. BEVACIZUMAB [Suspect]
     Active Substance: BEVACIZUMAB
     Dosage: 475 MILLIGRAM
     Route: 042
     Dates: start: 20220614
  13. BEVACIZUMAB [Suspect]
     Active Substance: BEVACIZUMAB
     Dosage: 425 MILLIGRAM
     Route: 042
     Dates: start: 20220811, end: 20220811
  14. BEVACIZUMAB [Suspect]
     Active Substance: BEVACIZUMAB
     Dosage: 398 MILLIGRAM
     Route: 042
     Dates: start: 20220922, end: 20220922
  15. BEVACIZUMAB [Suspect]
     Active Substance: BEVACIZUMAB
     Dosage: 425 MILLIGRAM
     Route: 042
     Dates: start: 20220908, end: 20220908
  16. BEVACIZUMAB [Suspect]
     Active Substance: BEVACIZUMAB
     Dosage: 450 MILLIGRAM
     Route: 042
     Dates: start: 20220712, end: 20220712
  17. FLUOROURACIL [Suspect]
     Active Substance: FLUOROURACIL
     Indication: Colorectal cancer
     Dosage: 4800 MILLIGRAM
     Route: 042
     Dates: start: 20220614, end: 20220614
  18. FLUOROURACIL [Suspect]
     Active Substance: FLUOROURACIL
     Dosage: 800 MILLIGRAM
     Route: 042
     Dates: start: 20220614, end: 20220908
  19. FLUOROURACIL [Suspect]
     Active Substance: FLUOROURACIL
     Dosage: 4800 MILLIGRAM
     Route: 042
     Dates: start: 20220629, end: 20220728
  20. FLUOROURACIL [Suspect]
     Active Substance: FLUOROURACIL
     Dosage: 4755 MILLIGRAM
     Route: 042
     Dates: start: 20220825, end: 20220825
  21. FLUOROURACIL [Suspect]
     Active Substance: FLUOROURACIL
     Dosage: 3950 MILLIGRAM
     Route: 042
     Dates: start: 20220908, end: 20220908
  22. ZIMBERELIMAB [Suspect]
     Active Substance: ZIMBERELIMAB
     Indication: Colorectal cancer
     Dosage: 480 MILLIGRAM
     Route: 042
     Dates: start: 20220614, end: 20220614
  23. ZIMBERELIMAB [Suspect]
     Active Substance: ZIMBERELIMAB
     Dosage: 480 MILLIGRAM
     Route: 042
     Dates: start: 20220712, end: 20220712
  24. ZIMBERELIMAB [Suspect]
     Active Substance: ZIMBERELIMAB
     Dosage: 480 MILLIGRAM
     Route: 042
     Dates: start: 20220811, end: 20220811
  25. ZIMBERELIMAB [Suspect]
     Active Substance: ZIMBERELIMAB
     Dosage: 480 MILLIGRAM
     Route: 042
     Dates: start: 20220908, end: 20220908
  26. ETRUMADENANT [Suspect]
     Active Substance: ETRUMADENANT
     Indication: Colorectal cancer
     Dosage: 150 MILLIGRAM
     Route: 048
     Dates: start: 20220615, end: 20220624
  27. ETRUMADENANT [Suspect]
     Active Substance: ETRUMADENANT
     Dosage: 150 MILLIGRAM
     Route: 048
     Dates: start: 20220616, end: 20220711
  28. ETRUMADENANT [Suspect]
     Active Substance: ETRUMADENANT
     Dosage: 150 MILLIGRAM
     Route: 065
     Dates: start: 20220712, end: 20220810
  29. ETRUMADENANT [Suspect]
     Active Substance: ETRUMADENANT
     Dosage: 150 MILLIGRAM
     Route: 065
     Dates: start: 20220614, end: 20220624
  30. ETRUMADENANT [Suspect]
     Active Substance: ETRUMADENANT
     Dosage: 150 MILLIGRAM
     Route: 048
     Dates: start: 20220811, end: 20220824
  31. ETRUMADENANT [Suspect]
     Active Substance: ETRUMADENANT
     Dosage: 150 MILLIGRAM
     Route: 065
     Dates: start: 20220908
  32. ETRUMADENANT [Suspect]
     Active Substance: ETRUMADENANT
     Dosage: 150 MILLIGRAM
     Route: 065
     Dates: start: 20220910, end: 20221005
  33. ETRUMADENANT [Suspect]
     Active Substance: ETRUMADENANT
     Dosage: 150 MILLIGRAM
     Route: 065
     Dates: start: 20221005
  34. LEUCOVORIN [Suspect]
     Active Substance: LEUCOVORIN\LEUCOVORIN CALCIUM
     Indication: Colorectal cancer
     Dosage: 400 MILLIGRAM
     Route: 042
     Dates: start: 20220614, end: 20220712
  35. LEUCOVORIN [Suspect]
     Active Substance: LEUCOVORIN\LEUCOVORIN CALCIUM
     Dosage: 400 MILLIGRAM
     Route: 065
     Dates: start: 20220728
  36. LEUCOVORIN [Suspect]
     Active Substance: LEUCOVORIN\LEUCOVORIN CALCIUM
     Dosage: 400 MILLIGRAM
     Route: 042
     Dates: start: 20220811, end: 20220825
  37. LEUCOVORIN [Suspect]
     Active Substance: LEUCOVORIN\LEUCOVORIN CALCIUM
     Dosage: 400 MILLIGRAM
     Route: 042
     Dates: start: 20220825, end: 20220825
  38. LEUCOVORIN [Suspect]
     Active Substance: LEUCOVORIN\LEUCOVORIN CALCIUM
     Dosage: 99 MILLIGRAM
     Route: 042
     Dates: start: 20220908, end: 20220908
  39. LEUCOVORIN [Suspect]
     Active Substance: LEUCOVORIN\LEUCOVORIN CALCIUM
     Dosage: 99 MILLIGRAM
     Route: 042
     Dates: start: 20220922, end: 20220922
  40. METOCLOPRAMIDE [Concomitant]
     Active Substance: METOCLOPRAMIDE
     Indication: Prophylaxis
     Dosage: UNK
     Route: 065
     Dates: start: 20220613
  41. METOCLOPRAMIDE [Concomitant]
     Active Substance: METOCLOPRAMIDE
     Dosage: UNK
     Route: 065
     Dates: start: 20220614
  42. LOPERAMIDE [Concomitant]
     Active Substance: LOPERAMIDE
     Indication: Product used for unknown indication
     Dosage: UNK
     Route: 065
     Dates: start: 20220613
  43. LOPERAMIDE [Concomitant]
     Active Substance: LOPERAMIDE
     Indication: Prophylaxis
  44. SODIUM BICARBONATE ATLANTIC [Concomitant]
     Indication: Prophylaxis
     Dosage: UNK
     Route: 065
     Dates: start: 20220613
  45. MONTMORILLONITE [Concomitant]
     Active Substance: MONTMORILLONITE
     Indication: Prophylaxis
     Dosage: UNK
     Route: 065
     Dates: start: 20220613
  46. APREPITANT [Concomitant]
     Active Substance: APREPITANT
     Indication: Product used for unknown indication
     Dosage: UNK
     Route: 065
     Dates: start: 20220613
  47. APREPITANT [Concomitant]
     Active Substance: APREPITANT
     Indication: Premedication
  48. ACETAMINOPHEN [Concomitant]
     Active Substance: ACETAMINOPHEN
     Indication: Product used for unknown indication
     Dosage: UNK
     Route: 065
     Dates: start: 20200701
  49. POLYETHYLENE GLYCOLS [Concomitant]
     Active Substance: POLYETHYLENE GLYCOLS
     Indication: Product used for unknown indication
     Dosage: UNK
     Route: 065
     Dates: start: 20220301
  50. TRAMADOL [Concomitant]
     Active Substance: TRAMADOL\TRAMADOL HYDROCHLORIDE
     Indication: Prophylaxis
     Dosage: UNK
     Route: 065
     Dates: start: 20220615
  51. LIDOCAINE [Concomitant]
     Active Substance: LIDOCAINE
     Indication: Product used for unknown indication
     Dosage: UNK
     Route: 065
     Dates: start: 20220811
  52. DOXYLAMINE SUCCINATE\SODIUM BROMIDE [Concomitant]
     Active Substance: DOXYLAMINE SUCCINATE\SODIUM BROMIDE
     Indication: Product used for unknown indication
     Dosage: UNK
     Route: 065
     Dates: start: 20210701
  53. RACECADOTRIL [Concomitant]
     Active Substance: RACECADOTRIL
     Indication: Product used for unknown indication
     Dosage: UNK
     Route: 065
     Dates: start: 20220613
  54. RACECADOTRIL [Concomitant]
     Active Substance: RACECADOTRIL
     Indication: Prophylaxis
  55. PREDNISOLONE [Concomitant]
     Active Substance: PREDNISOLONE
     Indication: Product used for unknown indication
     Dosage: UNK
     Route: 065
     Dates: start: 20220811
  56. LANSOPRAZOLE [Concomitant]
     Active Substance: LANSOPRAZOLE
     Indication: Product used for unknown indication
     Dosage: UNK
     Route: 065
     Dates: start: 20220728
  57. ARTISIAL [Concomitant]
     Active Substance: CALCIUM CHLORIDE\MAGNESIUM CHLORIDE\POTASSIUM CHLORIDE\POTASSIUM PHOSPHATE, DIBASIC\POTASSIUM PHOSPH
     Indication: Product used for unknown indication
     Dosage: UNK
     Route: 065
     Dates: start: 20220811
  58. HYDROCORTISONE [Concomitant]
     Active Substance: HYDROCORTISONE
     Indication: Product used for unknown indication
     Dosage: UNK
     Route: 065
     Dates: start: 20220825, end: 20220922
  59. METHYLPREDNISOLONE [Concomitant]
     Active Substance: METHYLPREDNISOLONE
     Indication: Product used for unknown indication
     Dosage: UNK
     Route: 065
     Dates: start: 20220825, end: 20220908
  60. PEGFILGRASTIM [Concomitant]
     Active Substance: PEGFILGRASTIM
     Indication: Product used for unknown indication
     Dosage: UNK
     Route: 065
     Dates: start: 20220828, end: 20220925
  61. HUMAN RED BLOOD CELL [Concomitant]
     Active Substance: HUMAN RED BLOOD CELL
     Indication: Product used for unknown indication
     Dosage: UNK
     Route: 065
     Dates: start: 20220922
  62. EPOETIN ZETA [Concomitant]
     Active Substance: ERYTHROPOIETIN
     Indication: Product used for unknown indication
     Dosage: UNK
     Route: 065
     Dates: start: 20220908, end: 20221013
  63. COVID-19 vaccine [Concomitant]
     Indication: Prophylaxis
     Dosage: UNK
     Route: 065
     Dates: start: 20220630, end: 20220630
  64. FILGRASTIM [Concomitant]
     Active Substance: FILGRASTIM
     Indication: Product used for unknown indication
     Dosage: UNK
     Route: 065
     Dates: start: 20220713, end: 20220727

REACTIONS (3)
  - Drug hypersensitivity [Fatal]
  - Hypersensitivity [Fatal]
  - Disease progression [Fatal]

NARRATIVE: CASE EVENT DATE: 20220712
